FAERS Safety Report 16394848 (Version 1)
Quarter: 2019Q3

REPORT INFORMATION
  Report Type: Spontaneous
  Country: US (occurrence: US)
  Receive Date: 20190604
  Receipt Date: 20190604
  Transmission Date: 20191004
  Serious: Yes (Disabling)
  Sender: FDA-Public Use
  Company Number: None

PATIENT
  Age: 55 Year
  Sex: Female
  Weight: 121.5 kg

DRUGS (13)
  1. AMLODIPINE [Concomitant]
     Active Substance: AMLODIPINE BESYLATE
  2. MULTIVITAMINS [Concomitant]
     Active Substance: VITAMINS
  3. CLUCOSAMINE CHONDROITIN [Concomitant]
  4. METFORMIN [Concomitant]
     Active Substance: METFORMIN HYDROCHLORIDE
  5. GLATOPA SQ [Concomitant]
  6. BACLOFEN. [Concomitant]
     Active Substance: BACLOFEN
  7. GADOLINIUM DYE [Suspect]
     Active Substance: GADOLINIUM
     Indication: X-RAY WITH CONTRAST
  8. TIZANI DINE [Concomitant]
  9. VITAMIN D [Concomitant]
     Active Substance: VITAMIN D NOS
  10. LAMICTAL [Concomitant]
     Active Substance: LAMOTRIGINE
  11. CYMBALTA [Concomitant]
     Active Substance: DULOXETINE HYDROCHLORIDE
  12. SENEKOT [Concomitant]
  13. LISINOPRIL. [Concomitant]
     Active Substance: LISINOPRIL

REACTIONS (3)
  - Scar [None]
  - Skin hypertrophy [None]
  - Secretion discharge [None]

NARRATIVE: CASE EVENT DATE: 20140101
